FAERS Safety Report 20960188 (Version 1)
Quarter: 2022Q2

REPORT INFORMATION
  Report Type: Report from Study
  Country: CA (occurrence: CA)
  Receive Date: 20220615
  Receipt Date: 20220615
  Transmission Date: 20220720
  Serious: Yes (Other)
  Sender: FDA-Public Use
  Company Number: CA-ABBVIE-22K-028-4427782-00

PATIENT
  Age: 62 Year
  Sex: Female

DRUGS (1)
  1. SKYRIZI [Suspect]
     Active Substance: RISANKIZUMAB-RZAA
     Indication: Psoriasis
     Route: 058
     Dates: start: 20211123, end: 20220315

REACTIONS (4)
  - Invasive ductal breast carcinoma [Unknown]
  - Precancerous cells present [Unknown]
  - Benign breast neoplasm [Unknown]
  - Biopsy breast abnormal [Unknown]

NARRATIVE: CASE EVENT DATE: 20220606
